FAERS Safety Report 6478635-4 (Version None)
Quarter: 2009Q4

REPORT INFORMATION
  Report Type: 
  Country: None (occurrence: None)
  Receive Date: 20091123
  Receipt Date: 20090812
  Transmission Date: 20100525
  Serious: No
  Sender: FDA-Public Use
  Company Number: 8050390

PATIENT
  Age: 40 Year
  Sex: Female
  Weight: 78.4 kg

DRUGS (18)
  1. CIMZIA [Suspect]
     Indication: CROHN'S DISEASE
     Dosage: 400 MG /M SC
     Route: 058
     Dates: start: 20090114
  2. TRAZODONE HCL [Concomitant]
  3. TRAZODONE HCL [Concomitant]
  4. XANAX [Concomitant]
  5. LASIX [Concomitant]
  6. POTASSIUM [Concomitant]
  7. METFORMIN HCL [Concomitant]
  8. HYZAAR [Concomitant]
  9. DIABETA [Concomitant]
  10. EFFEXOR XR [Concomitant]
  11. ABILIFY [Concomitant]
  12. NEXIUM [Concomitant]
  13. ACTOS [Concomitant]
  14. PRO-AIR [Concomitant]
  15. LIPITOR [Concomitant]
  16. NEURONTIN [Concomitant]
  17. DILAUDID [Concomitant]
  18. NORCO [Concomitant]

REACTIONS (1)
  - MIGRAINE [None]
